FAERS Safety Report 21516283 (Version 3)
Quarter: 2022Q4

REPORT INFORMATION
  Report Type: Report from Study
  Country: KR (occurrence: KR)
  Receive Date: 20221027
  Receipt Date: 20221123
  Transmission Date: 20230113
  Serious: Yes (Hospitalization)
  Sender: FDA-Public Use
  Company Number: KR-PFIZER INC-PV202200084465

PATIENT
  Age: 58 Year
  Sex: Male
  Weight: 79.7 kg

DRUGS (7)
  1. INLYTA [Suspect]
     Active Substance: AXITINIB
     Indication: Salivary gland cancer
     Dosage: 5 MG, 1X/DAY
     Route: 048
     Dates: start: 20220915, end: 20221015
  2. NAVELBINE [Suspect]
     Active Substance: VINORELBINE TARTRATE
     Indication: Salivary gland cancer
     Dosage: D1, D8
     Route: 042
     Dates: start: 20220915, end: 20221013
  3. CISPLATIN [Suspect]
     Active Substance: CISPLATIN
     Indication: Salivary gland cancer
     Dosage: 45 MG/M2, EVERY 3 WEEKS
     Route: 042
     Dates: start: 20220915, end: 20221013
  4. SUDAFED [Concomitant]
     Active Substance: PSEUDOEPHEDRINE HYDROCHLORIDE
     Indication: Cough
     Dosage: UNK
     Route: 048
     Dates: start: 20221007
  5. Citrevo [Concomitant]
     Indication: Cough
     Dosage: UNK
     Route: 048
     Dates: start: 20221007
  6. SAMXETIL [Concomitant]
     Indication: Cough
     Dosage: UNK
     Route: 048
     Dates: start: 20221007
  7. LOXOPROFEN [Concomitant]
     Active Substance: LOXOPROFEN
     Indication: Cough
     Dosage: UNK
     Route: 048
     Dates: start: 20221007

REACTIONS (1)
  - Asthenia [Recovered/Resolved]

NARRATIVE: CASE EVENT DATE: 20221014
